FAERS Safety Report 23822622 (Version 2)
Quarter: 2024Q2

REPORT INFORMATION
  Report Type: Spontaneous
  Country: IT (occurrence: None)
  Receive Date: 20240506
  Receipt Date: 20240516
  Transmission Date: 20240716
  Serious: Yes (Other)
  Sender: FDA-Public Use
  Company Number: 2024A106743

PATIENT
  Age: 65 Year
  Sex: Male

DRUGS (12)
  1. OMEPRAZOLE [Suspect]
     Active Substance: DONEPEZIL HYDROCHLORIDE\OMEPRAZOLE\OMEPRAZOLE MAGNESIUM
  2. CAPECITABINE [Suspect]
     Active Substance: CAPECITABINE
     Indication: Colorectal adenocarcinoma
     Dosage: 1500 MILLIGRAM IN 12 HOUR // 3000 MILLIGRAM; BID
     Route: 048
     Dates: start: 20231108, end: 20231122
  3. CAPECITABINE [Suspect]
     Active Substance: CAPECITABINE
     Indication: Colorectal adenocarcinoma
     Dosage: 1500 MILLIGRAM IN 12 HOUR // 3000 MILLIGRAM; BID
     Route: 048
     Dates: start: 20231130, end: 20231212
  4. CAPECITABINE [Suspect]
     Active Substance: CAPECITABINE
     Indication: Colorectal adenocarcinoma
     Dosage: 1500 MILLIGRAM IN 12 HOUR // 3000 MILLIGRAM; BID, TREATMENT SCHEDULE CAPECITABINE G1,G14, Q21
     Route: 048
     Dates: start: 20240103, end: 20240117
  5. CAPECITABINE [Suspect]
     Active Substance: CAPECITABINE
     Indication: Colorectal adenocarcinoma
     Dosage: 1500 MILLIGRAM IN 12 HOUR // 3000 MILLIGRAM; BID, TREATMENT SCHEDULE CAPECITABINE G1,G14, Q21
     Route: 048
     Dates: start: 20240215, end: 20240228
  6. CAPECITABINE [Suspect]
     Active Substance: CAPECITABINE
     Indication: Colorectal adenocarcinoma
     Dosage: 1500 MILLIGRAM IN 12 HOUR // 3000 MILLIGRAM; BID, TREATMENT SCHEDULE CAPECITABINE G1,G14, Q21
     Route: 048
     Dates: start: 20240307, end: 20240320
  7. CAPECITABINE [Suspect]
     Active Substance: CAPECITABINE
     Indication: Colorectal adenocarcinoma
     Dosage: THERAPEUTIC SCHEME: D1-D14, Q21
     Route: 048
     Dates: start: 20240327, end: 20240409
  8. OXALIPLATIN [Suspect]
     Active Substance: OXALIPLATIN
     Indication: Colorectal adenocarcinoma
     Dosage: 182 MILLIGRAM IN 21 DAY
     Route: 042
     Dates: start: 20231108, end: 20231108
  9. OXALIPLATIN [Suspect]
     Active Substance: OXALIPLATIN
     Indication: Colorectal adenocarcinoma
     Dosage: 204.75 MILLIGRAM IN 21 DAY
     Route: 042
     Dates: start: 20231129, end: 20231129
  10. OXALIPLATIN [Suspect]
     Active Substance: OXALIPLATIN
     Indication: Colorectal adenocarcinoma
     Dosage: 182 MILLIGRAM IN 21 DAY
     Route: 042
     Dates: start: 20240103, end: 20240103
  11. OXALIPLATIN [Suspect]
     Active Substance: OXALIPLATIN
     Indication: Colorectal adenocarcinoma
     Dosage: 182 MILLIGRAM IN 21 DAY
     Route: 042
     Dates: start: 20240215, end: 20240215
  12. OXALIPLATIN [Suspect]
     Active Substance: OXALIPLATIN
     Indication: Colorectal adenocarcinoma
     Dosage: 182 MILLIGRAM IN 21 DAY
     Route: 042
     Dates: start: 20240307, end: 20240307

REACTIONS (13)
  - Paraesthesia [Not Recovered/Not Resolved]
  - Neuropathy peripheral [Recovering/Resolving]
  - Thrombocytopenia [Unknown]
  - Asthenia [Recovered/Resolved]
  - Gastrooesophageal reflux disease [Recovered/Resolved]
  - Mucosal inflammation [Recovering/Resolving]
  - Diarrhoea [Recovered/Resolved]
  - Diarrhoea [Recovered/Resolved]
  - Abdominal pain [Recovered/Resolved]
  - Blood alkaline phosphatase increased [Unknown]
  - Paraesthesia [Recovering/Resolving]
  - Paraesthesia [Recovering/Resolving]
  - Paraesthesia [Not Recovered/Not Resolved]

NARRATIVE: CASE EVENT DATE: 20231109
